FAERS Safety Report 14281311 (Version 1)
Quarter: 2017Q4

REPORT INFORMATION
  Report Type: Spontaneous
  Country: US (occurrence: US)
  Receive Date: 20171213
  Receipt Date: 20171213
  Transmission Date: 20180321
  Serious: No
  Sender: FDA-Public Use
  Company Number: US-ELI_LILLY_AND_COMPANY-US201712003209

PATIENT
  Sex: Female
  Weight: 61.22 kg

DRUGS (2)
  1. REMODULIN [Concomitant]
     Active Substance: TREPROSTINIL
     Indication: PULMONARY ARTERIAL HYPERTENSION
     Dosage: 20 UG/KG/MIN, CONTINUOUS
     Route: 042
     Dates: start: 20171122
  2. ADCIRCA [Suspect]
     Active Substance: TADALAFIL
     Indication: PRODUCT USED FOR UNKNOWN INDICATION
     Dosage: 2 DF, DAILY
     Route: 065

REACTIONS (4)
  - Skin irritation [Unknown]
  - Pruritus [Unknown]
  - Dyspnoea [Unknown]
  - Prescribed overdose [Unknown]
